FAERS Safety Report 6820345-5 (Version None)
Quarter: 2010Q3

REPORT INFORMATION
  Report Type: 
  Country: None (occurrence: None)
  Receive Date: 20100707
  Receipt Date: 20100629
  Transmission Date: 20110219
  Serious: Yes (Other)
  Sender: FDA-Public Use
  Company Number: BR-SANOFI-AVENTIS-2010SA038172

PATIENT
  Sex: Female

DRUGS (11)
  1. LANTUS [Suspect]
     Dates: start: 20080101
  2. OPTIPEN [Suspect]
  3. APIDRA [Concomitant]
     Dosage: 4 IU AT LUNCH + DINNER ACCORDING TO GLYCEMIA
     Route: 058
     Dates: start: 20100627
  4. LEVOTHYROXINE SODIUM [Concomitant]
     Route: 048
  5. ENALAPRIL MALEATE [Concomitant]
     Indication: HYPERTENSION
     Route: 048
  6. MEMANTINE [Concomitant]
     Route: 048
     Dates: start: 20080101
  7. FLUOXETINE [Concomitant]
     Route: 048
     Dates: start: 20080101
  8. SIMVASTATIN [Concomitant]
     Route: 048
     Dates: start: 20100401
  9. HUMALOG [Concomitant]
  10. METFORMIN HCL [Concomitant]
     Route: 048
  11. GLIMEPIRIDE [Concomitant]
     Route: 048

REACTIONS (5)
  - AMNESIA [None]
  - DEMENTIA ALZHEIMER'S TYPE [None]
  - FATIGUE [None]
  - HYPERGLYCAEMIA [None]
  - MEMORY IMPAIRMENT [None]
